FAERS Safety Report 13233123 (Version 1)
Quarter: 2017Q1

REPORT INFORMATION
  Report Type: Spontaneous
  Country: US (occurrence: US)
  Receive Date: 20170215
  Receipt Date: 20170215
  Transmission Date: 20170428
  Serious: Yes (Hospitalization, Other)
  Sender: FDA-Public Use
  Company Number: US-ROCHE-1893215

PATIENT
  Age: 49 Year
  Sex: Male

DRUGS (2)
  1. ALBUTEROL INHALATION SOLUTION [Concomitant]
     Active Substance: ALBUTEROL
     Dosage: YES
     Route: 065
  2. PULMOZYME [Suspect]
     Active Substance: DORNASE ALFA
     Indication: CYSTIC FIBROSIS
     Dosage: 2 AMPULES ONCE A DAY ;ONGOING: YES
     Route: 055

REACTIONS (7)
  - Cystic fibrosis [Recovered/Resolved]
  - Pancreatic enzymes decreased [Unknown]
  - Fracture pain [Recovered/Resolved]
  - Osteoporosis [Unknown]
  - Cough [Recovered/Resolved]
  - Chronic sinusitis [Unknown]
  - Malabsorption [Unknown]

NARRATIVE: CASE EVENT DATE: 201612
